FAERS Safety Report 9252067 (Version 2)
Quarter: 2013Q2

REPORT INFORMATION
  Report Type: Spontaneous
  Country: BR (occurrence: BR)
  Receive Date: 20130424
  Receipt Date: 20130424
  Transmission Date: 20140414
  Serious: Yes (Other)
  Sender: FDA-Public Use
  Company Number: PHHY2013BR038773

PATIENT
  Sex: Male

DRUGS (1)
  1. APRESOLIN [Suspect]
     Dosage: 25 MG, UNK

REACTIONS (1)
  - Drug dependence [Unknown]
